FAERS Safety Report 9738574 (Version 5)
Quarter: 2016Q1

REPORT INFORMATION
  Report Type: Spontaneous
  Country: JP (occurrence: JP)
  Receive Date: 20131209
  Receipt Date: 20160216
  Transmission Date: 20160526
  Serious: Yes (Life-Threatening, Hospitalization, Other)
  Sender: FDA-Public Use
  Company Number: JP-ROCHE-1289238

PATIENT
  Age: 68 Year
  Sex: Female
  Weight: 52 kg

DRUGS (18)
  1. XELODA [Suspect]
     Active Substance: CAPECITABINE
     Indication: COLON CANCER RECURRENT
     Route: 048
     Dates: start: 20130829, end: 20130911
  2. WARFARIN [Interacting]
     Active Substance: WARFARIN
     Indication: PULMONARY EMBOLISM
     Route: 048
     Dates: start: 20130116, end: 20131007
  3. ELPLAT [Concomitant]
     Active Substance: OXALIPLATIN
     Indication: COLON CANCER
     Route: 041
     Dates: start: 20130829
  4. ELPLAT [Concomitant]
     Active Substance: OXALIPLATIN
     Route: 041
     Dates: start: 20130920
  5. XELODA [Interacting]
     Active Substance: CAPECITABINE
     Route: 048
     Dates: start: 20130920, end: 20131003
  6. GASMOTIN [Concomitant]
     Active Substance: MOSAPRIDE CITRATE
     Route: 048
     Dates: start: 20130829
  7. RESTAMIN [Concomitant]
     Active Substance: DIPHENHYDRAMINE
     Route: 065
     Dates: start: 20130829
  8. BLOPRESS [Concomitant]
     Active Substance: CANDESARTAN CILEXETIL
     Route: 048
  9. DEPAS [Concomitant]
     Active Substance: ETIZOLAM
     Route: 048
  10. DEXART [Concomitant]
     Active Substance: DEXAMETHASONE SODIUM PHOSPHATE
     Route: 065
     Dates: start: 20130829
  11. ARTIST [Concomitant]
     Active Substance: CARVEDILOL
     Route: 048
  12. AMLODIPINE [Concomitant]
     Active Substance: AMLODIPINE BESYLATE
     Route: 048
  13. OMEPRAL [Concomitant]
     Active Substance: OMEPRAZOLE
     Route: 048
  14. BAYASPIRIN [Concomitant]
     Active Substance: ASPIRIN
     Route: 048
  15. BIOFERMIN T [Concomitant]
     Route: 048
  16. SEROTONE [Concomitant]
     Active Substance: AZASETRON HYDROCHLORIDE
     Route: 065
     Dates: start: 20130829
  17. TRICHLORMETHIAZIDE [Concomitant]
     Active Substance: TRICHLORMETHIAZIDE
     Route: 048
  18. AMOBAN [Concomitant]
     Active Substance: ZOPICLONE
     Route: 048

REACTIONS (5)
  - Hypophagia [Unknown]
  - Stomatitis [Unknown]
  - Drug interaction [Unknown]
  - Haemorrhage subcutaneous [Recovered/Resolved]
  - Abdominal discomfort [Unknown]

NARRATIVE: CASE EVENT DATE: 20131007
